FAERS Safety Report 19615141 (Version 1)
Quarter: 2021Q3

REPORT INFORMATION
  Report Type: Spontaneous
  Country: GB (occurrence: GB)
  Receive Date: 20210727
  Receipt Date: 20210727
  Transmission Date: 20211014
  Serious: Yes (Hospitalization)
  Sender: FDA-Public Use
  Company Number: GB-ALLERGAN-2126771US

PATIENT
  Sex: Female

DRUGS (6)
  1. CITALOPRAM HYDROBROMIDE ? BP [Suspect]
     Active Substance: CITALOPRAM HYDROBROMIDE
     Dosage: 10 MG, QD
  2. PARACETAMOL [Concomitant]
     Active Substance: ACETAMINOPHEN
     Indication: PRODUCT USED FOR UNKNOWN INDICATION
     Dosage: UNK
     Route: 065
  3. CITALOPRAM HYDROBROMIDE ? BP [Suspect]
     Active Substance: CITALOPRAM HYDROBROMIDE
     Dosage: 20 MG, QD
  4. CITALOPRAM HYDROBROMIDE ? BP [Suspect]
     Active Substance: CITALOPRAM HYDROBROMIDE
     Dosage: 30 MG, QD
  5. IBUPROFEN. [Concomitant]
     Active Substance: IBUPROFEN
     Indication: PRODUCT USED FOR UNKNOWN INDICATION
     Dosage: UNK
     Route: 065
  6. CITALOPRAM HYDROBROMIDE ? BP [Suspect]
     Active Substance: CITALOPRAM HYDROBROMIDE
     Indication: POLYCYSTIC OVARIES
     Dosage: 40 MG, QD
     Route: 065

REACTIONS (2)
  - Gastrointestinal haemorrhage [Unknown]
  - Product use in unapproved indication [Unknown]
